FAERS Safety Report 9740005 (Version 1)
Quarter: 2013Q4

REPORT INFORMATION
  Report Type: Spontaneous
  Country: DK (occurrence: DK)
  Receive Date: 20131209
  Receipt Date: 20131209
  Transmission Date: 20140711
  Serious: Yes (Disabling)
  Sender: FDA-Public Use
  Company Number: DK-WATSON-2013-22422

PATIENT
  Age: 68 Year
  Sex: Male
  Weight: 70 kg

DRUGS (1)
  1. SIMVASTATIN ACTAVIS [Suspect]
     Indication: HYPERCHLORAEMIA
     Dosage: 40 MG DAILY. STRENGTH: 40MG
     Route: 048
     Dates: end: 20131119

REACTIONS (1)
  - Restrictive pulmonary disease [Not Recovered/Not Resolved]
